FAERS Safety Report 21350139 (Version 2)
Quarter: 2022Q3

REPORT INFORMATION
  Report Type: Spontaneous
  Country: US (occurrence: US)
  Receive Date: 20220919
  Receipt Date: 20220928
  Transmission Date: 20221027
  Serious: Yes (Hospitalization)
  Sender: FDA-Public Use
  Company Number: US-ADVANZ PHARMA-202208005271

PATIENT

DRUGS (9)
  1. HYDROXYCHLOROQUINE [Suspect]
     Active Substance: HYDROXYCHLOROQUINE
     Indication: Granuloma annulare
     Dosage: 400 MG, QD
     Route: 065
     Dates: start: 202107, end: 202110
  2. PREDNISONE [Suspect]
     Active Substance: PREDNISONE
     Dosage: 10 ML
  3. PREDNISONE [Suspect]
     Active Substance: PREDNISONE
     Dosage: UNK, TAPERED
  4. Fuocinonide [Concomitant]
     Dosage: UNK
     Route: 061
  5. DUPIXENT [Concomitant]
     Active Substance: DUPILUMAB
     Dosage: 300 ML EVERY OTHER WEEK
     Dates: start: 20220202
  6. EUCERIN [Concomitant]
     Active Substance: ENSULIZOLE\EUCERIN\OCTINOXATE\OCTISALATE\TITANIUM DIOXIDE\ZINC OXIDE
  7. TACROLIMUS [Concomitant]
     Active Substance: TACROLIMUS
  8. DAPSONE [Concomitant]
     Active Substance: DAPSONE
  9. CeraVe [Concomitant]
     Dosage: UNK

REACTIONS (1)
  - Granuloma annulare [Not Recovered/Not Resolved]
